FAERS Safety Report 8338911 (Version 2)
Quarter: 2013Q2

REPORT INFORMATION
  Report Type: Spontaneous
  Country: US (occurrence: None)
  Receive Date: 20111202
  Receipt Date: 20121203
  Transmission Date: 20140414
  Serious: Yes (Hospitalization)
  Sender: FDA-Public Use
  Company Number: 2011SP026444

PATIENT
  Age: 44 Year
  Sex: Female
  Weight: 69.4 kg

DRUGS (2)
  1. NUVARING (ETONOGESTREL (+) ETHINYL ESTRADIOL) VAGINAL RING [Suspect]
     Indication: CONTRACEPTION
     Dates: start: 200811, end: 20090616
  2. NUVARING (ETONOGESTREL (+) ETHINYL ESTRADIOL) VAGINAL RING [Suspect]
     Indication: MENSTRUATION IRREGULAR
     Dates: start: 200811, end: 20090616

REACTIONS (5)
  - TRANSVERSE SINUS THROMBOSIS [None]
  - Influenza like illness [None]
  - Oral herpes [None]
  - Asthenia [None]
  - Menorrhagia [None]
